FAERS Safety Report 4478411-8 (Version None)
Quarter: 2004Q4

REPORT INFORMATION
  Report Type: 
  Country: None (occurrence: None)
  Receive Date: 20041018
  Receipt Date: 20041018
  Transmission Date: 20050328
  Serious: Yes (Other)
  Sender: FDA-Public Use
  Company Number: None

PATIENT
  Age: 76 Year
  Sex: Male
  Weight: 81.6475 kg

DRUGS (1)
  1. METOPROLOL  50MG [Suspect]
     Indication: HYPERTENSION
     Dosage: 25 MG BID
     Dates: start: 20030514, end: 20040314

REACTIONS (1)
  - NIGHTMARE [None]
